FAERS Safety Report 6096688-2 (Version None)
Quarter: 2009Q1

REPORT INFORMATION
  Report Type: 
  Country: None (occurrence: None)
  Receive Date: 20090225
  Receipt Date: 20090217
  Transmission Date: 20090719
  Serious: Yes (Hospitalization)
  Sender: FDA-Public Use
  Company Number: GXKR2009SG02070

PATIENT
  Age: 62 Year
  Sex: Male

DRUGS (2)
  1. ACETYLSALICYLIC ACID SRT [Suspect]
     Dosage: 100 MG/DAY,
  2. ATENOLOL [Concomitant]

REACTIONS (10)
  - ANAL SPHINCTER ATONY [None]
  - BACK PAIN [None]
  - EXTRADURAL HAEMATOMA [None]
  - HYPOAESTHESIA [None]
  - HYPOREFLEXIA [None]
  - MUSCULAR WEAKNESS [None]
  - PARAPLEGIA [None]
  - SPINAL CORD COMPRESSION [None]
  - URINARY RETENTION [None]
  - VENOUS HAEMORRHAGE [None]
